FAERS Safety Report 17192079 (Version 1)
Quarter: 2019Q4

REPORT INFORMATION
  Report Type: Report from Study
  Country: CA (occurrence: CA)
  Receive Date: 20191223
  Receipt Date: 20191223
  Transmission Date: 20200122
  Serious: Yes (Other)
  Sender: FDA-Public Use
  Company Number: CA-PFIZER INC-2019549107

PATIENT
  Age: 44 Year
  Sex: Male

DRUGS (9)
  1. CITALOPRAM [Suspect]
     Active Substance: CITALOPRAM HYDROBROMIDE
     Dosage: 20 MG, 1X/DAY
     Route: 065
  2. PREDNISONE. [Suspect]
     Active Substance: PREDNISONE
     Dosage: 40 MG, 1X/DAY
     Route: 065
  3. SYMBICORT [Suspect]
     Active Substance: BUDESONIDE\FORMOTEROL FUMARATE DIHYDRATE
     Dosage: 2 DF, 3X/DAY
     Route: 065
  4. RABEPRAZOLE [Suspect]
     Active Substance: RABEPRAZOLE
     Dosage: UNK
     Route: 065
  5. VENTOLIN [Suspect]
     Active Substance: ALBUTEROL SULFATE
     Dosage: UNK
     Route: 065
  6. ATIVAN [Suspect]
     Active Substance: LORAZEPAM
     Dosage: UNK
     Route: 065
  7. MEPOLIZUMAB [Suspect]
     Active Substance: MEPOLIZUMAB
     Indication: ASTHMA
     Dosage: 100 MG, UNK
     Route: 042
  8. AZITHROMYCIN ANHYDROUS. [Concomitant]
     Active Substance: AZITHROMYCIN ANHYDROUS
     Dosage: 500 MG, 1X/DAY
     Route: 065
  9. SPORANOX [Suspect]
     Active Substance: ITRACONAZOLE
     Dosage: 100 MG, 3X/DAY
     Route: 065

REACTIONS (13)
  - Blood count abnormal [Unknown]
  - Bronchiectasis [Unknown]
  - Lymphadenopathy [Unknown]
  - Obstructive airways disorder [Unknown]
  - Chest discomfort [Unknown]
  - Upper respiratory tract infection [Unknown]
  - Condition aggravated [Unknown]
  - Cough [Unknown]
  - Secretion discharge [Unknown]
  - Tendon disorder [Unknown]
  - Weight increased [Unknown]
  - Respiratory disorder [Unknown]
  - Sinus congestion [Unknown]
